FAERS Safety Report 16973670 (Version 2)
Quarter: 2020Q1

REPORT INFORMATION
  Report Type: Spontaneous
  Country: US (occurrence: US)
  Receive Date: 20191030
  Receipt Date: 20200107
  Transmission Date: 20200409
  Serious: Yes (Other)
  Sender: FDA-Public Use
  Company Number: US-BAYER-2019-193113

PATIENT
  Age: 27 Year
  Sex: Female
  Weight: 92.98 kg

DRUGS (2)
  1. MIRENA [Suspect]
     Active Substance: LEVONORGESTREL
     Indication: CONTRACEPTION
     Dosage: 20 MCG/24HR, CONT
     Route: 015
     Dates: start: 20190717
  2. MIRENA [Suspect]
     Active Substance: LEVONORGESTREL
     Indication: CONTRACEPTION

REACTIONS (5)
  - Medical device monitoring error [None]
  - Pregnancy with contraceptive device [None]
  - Device dislocation [Not Recovered/Not Resolved]
  - Contraindicated device used [None]
  - Pelvic pain [None]
